FAERS Safety Report 5898032-X (Version None)
Quarter: 2008Q3

REPORT INFORMATION
  Report Type: 
  Country: None (occurrence: None)
  Receive Date: 20080924
  Receipt Date: 20080924
  Transmission Date: 20090109
  Serious: Yes (Hospitalization)
  Sender: FDA-Public Use
  Company Number: None

PATIENT
  Sex: Female
  Weight: 77 kg

DRUGS (2)
  1. CARBOPLATIN [Suspect]
     Dosage: 459 MG
     Dates: end: 20080908
  2. TAXOL [Suspect]
     Dosage: 318 MG
     Dates: end: 20080908

REACTIONS (4)
  - ATELECTASIS [None]
  - METASTASES TO PLEURA [None]
  - NEUTROPENIA [None]
  - PLEURAL EFFUSION [None]
